FAERS Safety Report 11144735 (Version 1)
Quarter: 2015Q2

REPORT INFORMATION
  Report Type: Spontaneous
  Country: CH (occurrence: CH)
  Receive Date: 20150528
  Receipt Date: 20150528
  Transmission Date: 20150821
  Serious: Yes (Other)
  Sender: FDA-Public Use
  Company Number: CH-BAYER-2015-258066

PATIENT
  Age: 50 Year
  Sex: Female

DRUGS (1)
  1. ULTRAVIST [Suspect]
     Active Substance: IOPROMIDE
     Indication: DIAGNOSTIC PROCEDURE
     Dosage: 100 ML, ONCE
     Route: 042
     Dates: start: 20150422, end: 20150422

REACTIONS (2)
  - Urticaria [Recovered/Resolved]
  - Skin discomfort [Recovered/Resolved]

NARRATIVE: CASE EVENT DATE: 20150422
